FAERS Safety Report 9085078 (Version 2)
Quarter: 2013Q1

REPORT INFORMATION
  Report Type: Spontaneous
  Country: US (occurrence: US)
  Receive Date: 20130130
  Receipt Date: 20130228
  Transmission Date: 20140127
  Serious: Yes (Other)
  Sender: FDA-Public Use
  Company Number: PHEH2013US002336

PATIENT
  Sex: Female

DRUGS (2)
  1. ZOMETA [Suspect]
     Indication: METASTASES TO BONE
     Dosage: UNK UKN, EVERY 3 WEEKS
     Route: 042
  2. ZOMETA [Suspect]
     Dosage: UNK
     Dates: start: 20130124

REACTIONS (2)
  - Femur fracture [Unknown]
  - Pain in extremity [Unknown]
